FAERS Safety Report 5895933-3 (Version None)
Quarter: 2008Q3

REPORT INFORMATION
  Report Type: 
  Country: None (occurrence: None)
  Receive Date: 20080924
  Receipt Date: 20080911
  Transmission Date: 20090109
  Serious: Yes (Hospitalization, Other)
  Sender: FDA-Public Use
  Company Number: NL-ROXANE LABORATORIES, INC.-2008-RO-00053RO

PATIENT

DRUGS (4)
  1. CITALOPRAM HYDROBROMIDE [Suspect]
  2. BENZODIAZEPINE [Suspect]
  3. ETHANOL [Suspect]
  4. DIAZEPAM [Concomitant]
     Indication: CONVULSION

REACTIONS (4)
  - CONVULSION [None]
  - DRUG TOXICITY [None]
  - ELECTROCARDIOGRAM QT PROLONGED [None]
  - TACHYCARDIA [None]
